FAERS Safety Report 9303413 (Version 1)
Quarter: 2013Q2

REPORT INFORMATION
  Report Type: Report from Study
  Country: CA (occurrence: CA)
  Receive Date: 20130522
  Receipt Date: 20130522
  Transmission Date: 20140414
  Serious: Yes (Other)
  Sender: FDA-Public Use
  Company Number: CA-JNJFOC-20130511247

PATIENT
  Age: 42 Year
  Sex: Male
  Weight: 34.47 kg

DRUGS (2)
  1. REMICADE [Suspect]
     Indication: CROHN^S DISEASE
     Route: 042
     Dates: start: 2011
  2. REMICADE [Suspect]
     Indication: CROHN^S DISEASE
     Dosage: INFUSION DATE IS 16-MAY-2013
     Route: 042
     Dates: start: 201305

REACTIONS (4)
  - Compression fracture [Recovering/Resolving]
  - Diarrhoea haemorrhagic [Unknown]
  - Dyspnoea [Recovered/Resolved]
  - Infusion related reaction [Recovered/Resolved]
